FAERS Safety Report 7971231-9 (Version None)
Quarter: 2011Q4

REPORT INFORMATION
  Report Type: 
  Country: None (occurrence: None)
  Receive Date: 20111212
  Receipt Date: 20111205
  Transmission Date: 20120403
  Serious: Yes (Death, Hospitalization)
  Sender: FDA-Public Use
  Company Number: DK-PFIZER INC-2011247601

PATIENT
  Age: 82 Year
  Sex: Female

DRUGS (2)
  1. ALENDRONATE SODIUM [Concomitant]
     Indication: OSTEOPOROSIS
  2. CLINDAMYCIN HCL [Suspect]
     Indication: ABSCESS
     Dosage: UNK
     Dates: start: 20080709, end: 20081023

REACTIONS (7)
  - CLOSTRIDIUM DIFFICILE COLITIS [None]
  - MALAISE [None]
  - DIARRHOEA [None]
  - DYSPNOEA [None]
  - VOMITING [None]
  - CLOSTRIDIUM DIFFICILE SEPSIS [None]
  - CARDIAC FAILURE [None]
